FAERS Safety Report 15281055 (Version 1)
Quarter: 2018Q3

REPORT INFORMATION
  Report Type: Spontaneous
  Country: DE (occurrence: DE)
  Receive Date: 20180815
  Receipt Date: 20180815
  Transmission Date: 20181010
  Serious: Yes (Other)
  Sender: FDA-Public Use
  Company Number: DE-TEVA-2018-DE-943146

PATIENT
  Age: 74 Year
  Sex: Male

DRUGS (11)
  1. ATROPINE. [Suspect]
     Active Substance: ATROPINE
     Indication: HEART RATE DECREASED
  2. REMIFENTANIL [Suspect]
     Active Substance: REMIFENTANIL
     Route: 050
  3. EPINEPHRINE. [Interacting]
     Active Substance: EPINEPHRINE
     Indication: HEART RATE DECREASED
  4. REMIFENTANIL [Suspect]
     Active Substance: REMIFENTANIL
     Route: 050
  5. DIKALIUMCHLORAZEPAT [Concomitant]
     Indication: PREMEDICATION
     Route: 048
  6. ROCURONIUM [Suspect]
     Active Substance: ROCURONIUM BROMIDE
     Indication: NEUROMUSCULAR BLOCKING THERAPY
     Route: 042
  7. ATROPINE. [Suspect]
     Active Substance: ATROPINE
     Indication: BLOOD PRESSURE DECREASED
     Route: 065
  8. PROPOFOL. [Concomitant]
     Active Substance: PROPOFOL
     Indication: ANAESTHESIA
     Route: 041
  9. FENTANYL. [Concomitant]
     Active Substance: FENTANYL
     Indication: ANAESTHESIA
     Route: 042
  10. TAMSULOSIN [Suspect]
     Active Substance: TAMSULOSIN
     Indication: BENIGN PROSTATIC HYPERPLASIA
     Route: 065
  11. EPINEPHRINE. [Interacting]
     Active Substance: EPINEPHRINE
     Indication: BLOOD PRESSURE DECREASED
     Dosage: THREE BOLUSES WERE GIVEN
     Route: 040

REACTIONS (5)
  - Drug ineffective [Unknown]
  - Hypotension [Recovering/Resolving]
  - Neuromuscular block prolonged [Recovered/Resolved]
  - Bradycardia [Recovering/Resolving]
  - Drug interaction [Recovered/Resolved]
